FAERS Safety Report 5272006-4 (Version None)
Quarter: 2007Q1

REPORT INFORMATION
  Report Type: 
  Country: None (occurrence: None)
  Receive Date: 20061214
  Receipt Date: 20060131
  Transmission Date: 20070707
  Serious: Yes (Other)
  Sender: FDA-Public Use
  Company Number: 2006015750

PATIENT
  Sex: Female
  Weight: 86.1834 kg

DRUGS (4)
  1. BEXTRA [Suspect]
     Indication: ARTHRITIS
     Dosage: 40 MG (20 MG,2 IN 1 D),ORAL
     Route: 048
     Dates: start: 20030101
  2. SYNTHROID [Concomitant]
  3. GLUCOPHAGE [Concomitant]
  4. CELEXA [Concomitant]

REACTIONS (5)
  - ANXIETY [None]
  - PAIN [None]
  - SKIN DISORDER [None]
  - SUICIDAL IDEATION [None]
  - WEIGHT INCREASED [None]
